FAERS Safety Report 5874846-7 (Version None)
Quarter: 2008Q3

REPORT INFORMATION
  Report Type: 
  Country: None (occurrence: None)
  Receive Date: 20080908
  Receipt Date: 20080908
  Transmission Date: 20090109
  Serious: Yes (Hospitalization)
  Sender: FDA-Public Use
  Company Number: None

PATIENT
  Sex: Male
  Weight: 87.5 kg

DRUGS (1)
  1. CARBOPLATIN [Suspect]
     Indication: BLADDER CANCER
     Dosage: 300 MG ONCE IV
     Route: 042
     Dates: start: 20080812

REACTIONS (1)
  - RASH PRURITIC [None]
